FAERS Safety Report 24369169 (Version 1)
Quarter: 2024Q3

REPORT INFORMATION
  Report Type: Report from Study
  Country: US (occurrence: US)
  Receive Date: 20240927
  Receipt Date: 20240927
  Transmission Date: 20241017
  Serious: No
  Sender: ROCHE
  Company Number: US-ROCHE-3450901

PATIENT
  Age: 58 Year
  Sex: Male

DRUGS (14)
  1. LUCENTIS [Suspect]
     Active Substance: RANIBIZUMAB
     Indication: Type 2 diabetes mellitus
     Dosage: THE ANTICIPATED DATE OF TREATMENT WAS ON 02/NOV/2023
     Route: 065
  2. LUCENTIS [Suspect]
     Active Substance: RANIBIZUMAB
     Indication: Diabetic retinopathy
  3. LUCENTIS [Suspect]
     Active Substance: RANIBIZUMAB
     Indication: Macular oedema
  4. VABYSMO [Suspect]
     Active Substance: FARICIMAB-SVOA
     Indication: Type 2 diabetes mellitus
     Route: 065
  5. VABYSMO [Suspect]
     Active Substance: FARICIMAB-SVOA
     Indication: Diabetic retinopathy
  6. VABYSMO [Suspect]
     Active Substance: FARICIMAB-SVOA
     Indication: Macular oedema
  7. AVASTIN [Suspect]
     Active Substance: BEVACIZUMAB
     Indication: Type 2 diabetes mellitus
     Route: 065
  8. AVASTIN [Suspect]
     Active Substance: BEVACIZUMAB
     Indication: Diabetic retinopathy
  9. AVASTIN [Suspect]
     Active Substance: BEVACIZUMAB
     Indication: Macular oedema
  10. LEVOTHYROXINE [Concomitant]
     Active Substance: LEVOTHYROXINE\LEVOTHYROXINE SODIUM
  11. ROSUVASTATIN [Concomitant]
     Active Substance: ROSUVASTATIN\ROSUVASTATIN CALCIUM
  12. VALSARTAN [Concomitant]
     Active Substance: VALSARTAN
  13. VITAMIN D [Concomitant]
     Active Substance: VITAMIN D NOS
  14. JANUMET [Concomitant]
     Active Substance: METFORMIN HYDROCHLORIDE\SITAGLIPTIN PHOSPHATE

REACTIONS (2)
  - Off label use [Unknown]
  - No adverse event [Unknown]
